FAERS Safety Report 6603753-7 (Version None)
Quarter: 2010Q1

REPORT INFORMATION
  Report Type: 
  Country: None (occurrence: None)
  Receive Date: 20100226
  Receipt Date: 20090119
  Transmission Date: 20100710
  Serious: No
  Sender: FDA-Public Use
  Company Number: A0764161A

PATIENT
  Age: 15 Year
  Sex: Male

DRUGS (3)
  1. LAMICTAL CD [Suspect]
     Indication: DRUG USE FOR UNKNOWN INDICATION
     Dosage: 6TAB UNKNOWN
     Route: 048
  2. COCAINE [Concomitant]
  3. HEROIN [Concomitant]

REACTIONS (2)
  - OVERDOSE [None]
  - SKIN REACTION [None]
